FAERS Safety Report 4358697-0 (Version None)
Quarter: 2004Q2

REPORT INFORMATION
  Report Type: 
  Country: None (occurrence: None)
  Receive Date: 20040511
  Receipt Date: 20040428
  Transmission Date: 20050107
  Serious: Yes (Life-Threatening, Other)
  Sender: FDA-Public Use
  Company Number: 2004029157

PATIENT
  Age: 26 Year
  Sex: Female
  Weight: 63.5036 kg

DRUGS (4)
  1. GEODON [Suspect]
     Indication: BIPOLAR DISORDER
     Dosage: ORAL
     Route: 048
     Dates: start: 20040211, end: 20040301
  2. LAMOTRIGINE [Concomitant]
  3. LORAZEPAM [Concomitant]
  4. HALOPERIDOL [Concomitant]

REACTIONS (7)
  - CARDIAC ARREST [None]
  - EYE PAIN [None]
  - FURUNCLE [None]
  - INFECTION [None]
  - INJECTION SITE PAIN [None]
  - MYDRIASIS [None]
  - REFUSAL OF TREATMENT BY PATIENT [None]
